FAERS Safety Report 20471167 (Version 1)
Quarter: 2022Q1

REPORT INFORMATION
  Report Type: Spontaneous
  Country: US (occurrence: US)
  Receive Date: 20220214
  Receipt Date: 20220214
  Transmission Date: 20220424
  Serious: Yes (Other)
  Sender: FDA-Public Use
  Company Number: US-OTSUKA-2022_004955

PATIENT
  Age: 12 Year
  Sex: Female

DRUGS (2)
  1. BUSULFAN [Suspect]
     Active Substance: BUSULFAN
     Indication: Bone marrow conditioning regimen
     Dosage: UNK
     Route: 065
  2. BUSULFAN [Suspect]
     Active Substance: BUSULFAN
     Indication: Acute leukaemia

REACTIONS (4)
  - Bronchiolitis obliterans syndrome [Unknown]
  - Cytomegalovirus infection reactivation [Unknown]
  - Mycobacterial infection [Unknown]
  - Product use in unapproved indication [Unknown]
